FAERS Safety Report 23476113 (Version 2)
Quarter: 2024Q3

REPORT INFORMATION
  Report Type: Spontaneous
  Country: BR (occurrence: BR)
  Receive Date: 20240204
  Receipt Date: 20240723
  Transmission Date: 20241016
  Serious: Yes (Death, Other)
  Sender: EXELIXIS
  Company Number: BR-EXELIXIS-CABO-23061890

PATIENT
  Age: 20 Year
  Sex: Female

DRUGS (7)
  1. CABOMETYX [Suspect]
     Active Substance: CABOZANTINIB S-MALATE
     Indication: Renal cell carcinoma
     Dosage: 40 MG, (EVERY TWO WEEKS, WITH A WEEK OF PAUSE)
     Route: 065
     Dates: start: 202303
  2. CABOMETYX [Suspect]
     Active Substance: CABOZANTINIB S-MALATE
     Dosage: 40 MG, QD
     Route: 065
     Dates: start: 202406
  3. NIVOLUMAB [Suspect]
     Active Substance: NIVOLUMAB
     Indication: Renal cell carcinoma
     Dosage: 480 MG, Q4WEEKS
     Dates: start: 202303
  4. LENVATINIB [Concomitant]
     Active Substance: LENVATINIB
  5. EVEROLIMUS [Concomitant]
     Active Substance: EVEROLIMUS
  6. BELZUTIFAN [Concomitant]
     Active Substance: BELZUTIFAN
  7. IPILIMUMAB [Concomitant]
     Active Substance: IPILIMUMAB

REACTIONS (7)
  - Death [Fatal]
  - Malignant neoplasm progression [Unknown]
  - Liver disorder [Unknown]
  - Inappropriate schedule of product administration [Unknown]
  - Product prescribing issue [Unknown]
  - Therapy partial responder [Unknown]
  - Drug ineffective [Unknown]

NARRATIVE: CASE EVENT DATE: 20230301
